FAERS Safety Report 25304175 (Version 1)
Quarter: 2025Q2

REPORT INFORMATION
  Report Type: Spontaneous
  Country: ES (occurrence: ES)
  Receive Date: 20250513
  Receipt Date: 20250513
  Transmission Date: 20250716
  Serious: Yes (Other)
  Sender: RK PHARMA
  Company Number: ES-RK PHARMA, INC-20250500059

PATIENT

DRUGS (1)
  1. MITOMYCIN [Suspect]
     Active Substance: MITOMYCIN
     Indication: Exfoliation glaucoma
     Route: 057

REACTIONS (2)
  - Blebitis [Recovering/Resolving]
  - Staphylococcal infection [Recovering/Resolving]
